FAERS Safety Report 20523361 (Version 4)
Quarter: 2023Q2

REPORT INFORMATION
  Report Type: Spontaneous
  Country: CO (occurrence: CO)
  Receive Date: 20220228
  Receipt Date: 20230504
  Transmission Date: 20230722
  Serious: Yes (Other)
  Sender: FDA-Public Use
  Company Number: CO-PFIZER INC-202200281667

PATIENT
  Age: 54 Year
  Sex: Male

DRUGS (1)
  1. ENBREL [Suspect]
     Active Substance: ETANERCEPT
     Indication: Ankylosing spondylitis
     Dosage: 50 MG, ON WEDNESDAY EACH 8 DAYS
     Route: 058

REACTIONS (8)
  - Varicose vein [Not Recovered/Not Resolved]
  - Hernia pain [Unknown]
  - Loss of consciousness [Recovered/Resolved]
  - Varicose ulceration [Unknown]
  - Inguinal hernia [Recovering/Resolving]
  - Gait inability [Recovering/Resolving]
  - Wound [Unknown]
  - Off label use [Unknown]

NARRATIVE: CASE EVENT DATE: 20210801
